APPROVED DRUG PRODUCT: VARITHENA
Active Ingredient: POLIDOCANOL
Strength: 180MG/18ML (10MG/ML)
Dosage Form/Route: SOLUTION;INTRAVENOUS
Application: N205098 | Product #001
Applicant: PROVENSIS LTD
Approved: Nov 25, 2013 | RLD: Yes | RS: Yes | Type: RX

PATENTS:
Patent 7814943 | Expires: Nov 19, 2027
Patent 9480652 | Expires: May 12, 2032